FAERS Safety Report 17848775 (Version 2)
Quarter: 2022Q2

REPORT INFORMATION
  Report Type: Spontaneous
  Country: DE (occurrence: DE)
  Receive Date: 20200602
  Receipt Date: 20220425
  Transmission Date: 20220721
  Serious: Yes (Other)
  Sender: FDA-Public Use
  Company Number: DE-NOVARTISPH-NVSC2020DE150363

PATIENT
  Sex: Female

DRUGS (5)
  1. GLIVEC [Suspect]
     Active Substance: IMATINIB MESYLATE
     Indication: Philadelphia positive chronic myeloid leukaemia
     Dosage: 600 MG, QD
     Route: 065
     Dates: start: 199912, end: 201503
  2. GLIVEC [Suspect]
     Active Substance: IMATINIB MESYLATE
     Dosage: 400 MG, QD
     Route: 065
     Dates: start: 201504, end: 201707
  3. IMATINIB [Suspect]
     Active Substance: IMATINIB
     Indication: Philadelphia positive chronic myeloid leukaemia
     Dosage: 400 MG
     Route: 065
     Dates: start: 201712, end: 201803
  4. ASCIMINIB [Suspect]
     Active Substance: ASCIMINIB
     Indication: Chronic myeloid leukaemia
     Dosage: 40 MG, BID (1-0-1)
     Route: 065
     Dates: start: 20200827
  5. DASATINIB [Concomitant]
     Active Substance: DASATINIB
     Indication: Philadelphia positive chronic myeloid leukaemia
     Dosage: UNK
     Route: 065
     Dates: start: 201710, end: 201712

REACTIONS (6)
  - Insulin-requiring type 2 diabetes mellitus [Unknown]
  - Renal failure [Unknown]
  - Anaemia macrocytic [Unknown]
  - Giardiasis [Unknown]
  - Gastroenteritis [Unknown]
  - Cytogenetic analysis abnormal [Unknown]
